FAERS Safety Report 17277668 (Version 1)
Quarter: 2020Q1

REPORT INFORMATION
  Report Type: Report from Study
  Country: US (occurrence: US)
  Receive Date: 20200116
  Receipt Date: 20200116
  Transmission Date: 20200409
  Serious: Yes (Life-Threatening)
  Sender: FDA-Public Use
  Company Number: US-ASTELLAS-2019US041873

PATIENT
  Age: 57 Year
  Sex: Male

DRUGS (1)
  1. ENZALUTAMIDE [Suspect]
     Active Substance: ENZALUTAMIDE
     Indication: PROSTATE CANCER METASTATIC
     Route: 048
     Dates: start: 20190923

REACTIONS (5)
  - Palpitations [Unknown]
  - Headache [Unknown]
  - Hypersensitivity [Recovered/Resolved]
  - Diarrhoea [Unknown]
  - Back pain [Unknown]

NARRATIVE: CASE EVENT DATE: 20191021
